FAERS Safety Report 4614800-6 (Version None)
Quarter: 2005Q1

REPORT INFORMATION
  Report Type: 
  Country: None (occurrence: None)
  Receive Date: 20050322
  Receipt Date: 20050315
  Transmission Date: 20050727
  Serious: Yes (Other)
  Sender: FDA-Public Use
  Company Number: 200512447GDDC

PATIENT
  Age: 38 Year
  Sex: Female

DRUGS (8)
  1. FLAGYL [Suspect]
     Indication: BACTERIAL INFECTION
     Route: 048
     Dates: start: 20050303, end: 20050305
  2. FLAGYL [Suspect]
     Indication: GASTRIC DISORDER
     Route: 048
     Dates: start: 20050303, end: 20050305
  3. PEPTO-BISMOL [Suspect]
     Indication: BACTERIAL INFECTION
     Dosage: DOSE: 262 MG/15 ML
     Route: 048
     Dates: start: 20050303
  4. PEPTO-BISMOL [Suspect]
     Indication: GASTRIC DISORDER
     Dosage: DOSE: 262 MG/15 ML
     Route: 048
     Dates: start: 20050303
  5. BIAXIN [Concomitant]
     Indication: BACTERIAL INFECTION
     Dates: start: 20050303
  6. BIAXIN [Concomitant]
     Indication: GASTRIC DISORDER
     Dates: start: 20050303
  7. NEXIUM [Concomitant]
     Indication: BACTERIAL INFECTION
     Dates: start: 20050303
  8. NEXIUM [Concomitant]
     Indication: GASTRIC DISORDER
     Dates: start: 20050303

REACTIONS (1)
  - HYPERSENSITIVITY [None]
